FAERS Safety Report 24544366 (Version 1)
Quarter: 2024Q4

REPORT INFORMATION
  Report Type: Spontaneous
  Country: LU (occurrence: LU)
  Receive Date: 20241024
  Receipt Date: 20241024
  Transmission Date: 20250114
  Serious: Yes (Hospitalization, Other)
  Sender: PFIZER
  Company Number: None

PATIENT
  Age: 92 Year
  Sex: Male

DRUGS (16)
  1. ESKETAMINE HYDROCHLORIDE [Suspect]
     Active Substance: ESKETAMINE HYDROCHLORIDE
     Indication: Anaesthesia
     Dosage: 1 DF, SINGLE
     Route: 042
     Dates: start: 20240923, end: 20240930
  2. LEVOPHED [Suspect]
     Active Substance: NOREPINEPHRINE BITARTRATE
     Dosage: 1 DF, SINGLE
     Route: 042
     Dates: start: 20240914, end: 20240916
  3. LEVOPHED [Suspect]
     Active Substance: NOREPINEPHRINE BITARTRATE
     Dosage: 1 DF, SINGLE
     Route: 042
     Dates: start: 20240924, end: 20241006
  4. FLUCLOXACILLIN SODIUM [Suspect]
     Active Substance: FLUCLOXACILLIN SODIUM
     Indication: Antibiotic therapy
     Dosage: FREQ:6 H;
     Route: 042
     Dates: start: 20240918, end: 20240918
  5. FLUCLOXACILLIN SODIUM [Suspect]
     Active Substance: FLUCLOXACILLIN SODIUM
     Dosage: FREQ:6 H;
     Route: 042
     Dates: start: 20240925, end: 20240930
  6. ERYTHROMYCIN [Suspect]
     Active Substance: ERYTHROMYCIN
     Indication: Antibiotic therapy
     Dosage: 1000 MG, SINGLE
     Route: 042
     Dates: start: 20240922, end: 20240922
  7. ERYTHROMYCIN [Suspect]
     Active Substance: ERYTHROMYCIN
     Dosage: FREQ:8 H;
     Route: 042
     Dates: start: 20240923, end: 20240930
  8. BUMETANIDE [Suspect]
     Active Substance: BUMETANIDE
     Indication: Cardiac failure
     Dosage: 1 DF, SINGLE
     Route: 042
     Dates: start: 20240916, end: 20241001
  9. BUMETANIDE [Suspect]
     Active Substance: BUMETANIDE
     Dosage: 1 DF, SINGLE
     Route: 042
     Dates: start: 20241005, end: 20241005
  10. SUFENTA [Suspect]
     Active Substance: SUFENTANIL CITRATE
     Indication: Anaesthesia
     Dosage: 1 DF, SINGLE
     Route: 042
     Dates: start: 20240924, end: 20240930
  11. NITROGLYCERIN [Suspect]
     Active Substance: NITROGLYCERIN
     Indication: Cardiovascular event prophylaxis
     Dosage: 1 DF, SINGLE NITRO CARINO
     Route: 042
     Dates: start: 20240915, end: 20240930
  12. DEXMEDETOMIDINE HYDROCHLORIDE [Suspect]
     Active Substance: DEXMEDETOMIDINE HYDROCHLORIDE
     Indication: Sedation
     Dosage: 1 DF, SINGLE
     Route: 042
     Dates: start: 20240914, end: 20240930
  13. ALBUREX [Suspect]
     Active Substance: ALBUMIN HUMAN
     Indication: Product used for unknown indication
     Dosage: 3 DF, 1X/DAY
     Route: 042
     Dates: start: 20240916, end: 20240916
  14. ALBUREX [Suspect]
     Active Substance: ALBUMIN HUMAN
     Dosage: FREQ:8 H;
     Route: 042
     Dates: start: 20240926, end: 20240930
  15. ENOXAPARIN SODIUM [Suspect]
     Active Substance: ENOXAPARIN SODIUM
     Indication: Thrombosis prophylaxis
     Dosage: 1 DF, 1X/DAY
     Route: 058
     Dates: start: 20240914, end: 20240930
  16. ENOXAPARIN SODIUM [Suspect]
     Active Substance: ENOXAPARIN SODIUM
     Dosage: 1 DF, 1X/DAY
     Route: 058
     Dates: start: 20240930, end: 20240930

REACTIONS (1)
  - Factor V deficiency [Not Recovered/Not Resolved]

NARRATIVE: CASE EVENT DATE: 20240928
